FAERS Safety Report 14305695 (Version 5)
Quarter: 2020Q1

REPORT INFORMATION
  Report Type: Spontaneous
  Country: PL (occurrence: PL)
  Receive Date: 20171219
  Receipt Date: 20200225
  Transmission Date: 20200409
  Serious: Yes (Other)
  Sender: FDA-Public Use
  Company Number: PHHY2017PL188896

PATIENT
  Age: 29 Year
  Sex: Female

DRUGS (7)
  1. METOPROLOL. [Suspect]
     Active Substance: METOPROLOL
     Indication: TACHYCARDIA
     Dosage: 75 MG, QD
     Route: 065
  2. CLOTRIMAZOL [Suspect]
     Active Substance: CLOTRIMAZOLE
     Indication: ENDOCARDITIS
     Dosage: UNK
     Route: 067
  3. IRON SUCROSE [Suspect]
     Active Substance: IRON SUCROSE
     Indication: PRODUCT USED FOR UNKNOWN INDICATION
     Dosage: 100 MG
     Route: 042
  4. AMPICILLIN [Suspect]
     Active Substance: AMPICILLIN
     Indication: ENDOCARDITIS
     Dosage: 10 G, QD
     Route: 065
  5. IRON [Suspect]
     Active Substance: IRON
     Indication: PRODUCT USED FOR UNKNOWN INDICATION
     Dosage: 50 MG/ML
     Route: 042
  6. IRON POLYMALTOSATE [Suspect]
     Active Substance: IRON POLYMALTOSE
     Dosage: UNK
     Route: 048
  7. IRON POLYMALTOSATE [Suspect]
     Active Substance: IRON POLYMALTOSE
     Indication: PRODUCT USED FOR UNKNOWN INDICATION
     Dosage: UNK
     Route: 042

REACTIONS (4)
  - Premature delivery [Unknown]
  - Leukopenia [Unknown]
  - Live birth [Unknown]
  - Maternal exposure during pregnancy [Unknown]
